FAERS Safety Report 9639036 (Version 1)
Quarter: 2013Q4

REPORT INFORMATION
  Report Type: Report from Study
  Country: US (occurrence: US)
  Receive Date: 20131022
  Receipt Date: 20131022
  Transmission Date: 20140711
  Serious: No
  Sender: FDA-Public Use
  Company Number: US-ABBVIE-12P-163-0996857-00

PATIENT
  Age: 41 Year
  Sex: Female
  Weight: 83.08 kg

DRUGS (5)
  1. LUPRON DEPOT [Suspect]
     Indication: MENORRHAGIA
     Dates: start: 20120925
  2. IRON [Concomitant]
     Indication: BLOOD IRON DECREASED
  3. ZINC [Concomitant]
     Indication: IMMUNE SYSTEM DISORDER
  4. VITAMIN D [Concomitant]
     Indication: VITAMIN D DECREASED
  5. ISONIAZID [Concomitant]
     Indication: TUBERCULIN TEST POSITIVE
     Dates: start: 201203

REACTIONS (3)
  - Menstrual disorder [Not Recovered/Not Resolved]
  - Metrorrhagia [Not Recovered/Not Resolved]
  - Off label use [Unknown]
